FAERS Safety Report 6705245-3 (Version None)
Quarter: 2010Q2

REPORT INFORMATION
  Report Type: 
  Country: None (occurrence: None)
  Receive Date: 20100430
  Receipt Date: 20100419
  Transmission Date: 20101027
  Serious: Yes (Other)
  Sender: FDA-Public Use
  Company Number: US-ELI_LILLY_AND_COMPANY-US201003008077

PATIENT
  Age: 74 Year
  Sex: Female
  Weight: 58.413 kg

DRUGS (8)
  1. ZYPREXA [Suspect]
     Indication: DEPRESSION SUICIDAL
     Dosage: 5 MG, UNK
     Dates: start: 20091130
  2. ZYPREXA [Suspect]
     Dosage: 10 MG, UNK
  3. ZYPREXA [Suspect]
     Dosage: 5 MG, UNK
     Dates: end: 20091229
  4. ZYPREXA [Suspect]
     Dosage: 2.5 MG, UNK
     Dates: end: 20100201
  5. LEVOTHYROXINE [Concomitant]
     Indication: HYPOTHYROIDISM
     Dosage: 100 UG, UNK
  6. ALPRAZOLAM [Concomitant]
     Indication: ANXIETY
     Dosage: 0.5 MG, AS NEEDED
  7. ESTRADIOL [Concomitant]
     Indication: HOT FLUSH
     Dosage: 1 MG, DAILY (1/D)
  8. IRON [Concomitant]
     Indication: IRON DEFICIENCY
     Dosage: 324 MG, DAILY (1/D)

REACTIONS (1)
  - HYPOTENSION [None]
